FAERS Safety Report 23638847 (Version 1)
Quarter: 2024Q1

REPORT INFORMATION
  Report Type: Spontaneous
  Country: RO (occurrence: RO)
  Receive Date: 20240315
  Receipt Date: 20240315
  Transmission Date: 20240409
  Serious: Yes (Other)
  Sender: FDA-Public Use
  Company Number: RO-ViiV Healthcare Limited-RO2024GSK032145

PATIENT

DRUGS (10)
  1. ZIDOVUDINE [Suspect]
     Active Substance: ZIDOVUDINE
     Indication: HIV infection
     Dosage: UNK
  2. ZIDOVUDINE [Suspect]
     Active Substance: ZIDOVUDINE
     Indication: Acquired immunodeficiency syndrome
  3. LAMIVUDINE [Suspect]
     Active Substance: LAMIVUDINE
     Indication: HIV infection
     Dosage: UNK
  4. LAMIVUDINE [Suspect]
     Active Substance: LAMIVUDINE
     Indication: Acquired immunodeficiency syndrome
  5. KIVEXA [Suspect]
     Active Substance: ABACAVIR SULFATE\LAMIVUDINE
     Indication: HIV infection
     Dosage: UNK
     Dates: start: 2013
  6. KIVEXA [Suspect]
     Active Substance: ABACAVIR SULFATE\LAMIVUDINE
     Indication: Acquired immunodeficiency syndrome
  7. LOPINAVIR\RITONAVIR [Suspect]
     Active Substance: LOPINAVIR\RITONAVIR
     Indication: HIV infection
     Dosage: UNK
  8. LOPINAVIR\RITONAVIR [Suspect]
     Active Substance: LOPINAVIR\RITONAVIR
     Indication: Acquired immunodeficiency syndrome
  9. EFAVIRENZ [Suspect]
     Active Substance: EFAVIRENZ
     Indication: Acquired immunodeficiency syndrome
     Dosage: UNK
  10. EFAVIRENZ [Suspect]
     Active Substance: EFAVIRENZ
     Indication: HIV infection

REACTIONS (4)
  - Virologic failure [Unknown]
  - Gastroenteritis [Unknown]
  - Meningitis meningococcal [Unknown]
  - Treatment noncompliance [Unknown]
